FAERS Safety Report 5191768-8 (Version None)
Quarter: 2006Q4

REPORT INFORMATION
  Report Type: 
  Country: None (occurrence: None)
  Receive Date: 20061219
  Receipt Date: 20061211
  Transmission Date: 20070319
  Serious: Yes (Other)
  Sender: FDA-Public Use
  Company Number: CA-2006-038557

PATIENT
  Age: 3 Day

DRUGS (1)
  1. MAGNEVIST [Suspect]
     Indication: NUCLEAR MAGNETIC RESONANCE IMAGING
     Dosage: 3 ML, 1 DOSE, INTRAVENOUS
     Route: 042
     Dates: start: 20061210, end: 20061210

REACTIONS (2)
  - LIVER FUNCTION TEST ABNORMAL [None]
  - OVERDOSE [None]
